FAERS Safety Report 13241421 (Version 1)
Quarter: 2017Q1

REPORT INFORMATION
  Report Type: Spontaneous
  Country: US (occurrence: US)
  Receive Date: 20170216
  Receipt Date: 20170216
  Transmission Date: 20170428
  Serious: Yes (Hospitalization)
  Sender: FDA-Public Use
  Company Number: US-EAGLE PHARMACEUTICALS, INC.-US-2017EAG000013

PATIENT
  Age: 59 Year
  Sex: Male

DRUGS (2)
  1. RITUXIMAB [Concomitant]
     Active Substance: RITUXIMAB
     Indication: CHRONIC LYMPHOCYTIC LEUKAEMIA
     Dosage: 500 MG/M2
  2. BENDAMUSTINE HYDROCLHORIDE [Suspect]
     Active Substance: BENDAMUSTINE HYDROCHLORIDE
     Indication: CHRONIC LYMPHOCYTIC LEUKAEMIA
     Dosage: 90 MG/M2

REACTIONS (10)
  - Polyuria [Not Recovered/Not Resolved]
  - Polydipsia [Recovering/Resolving]
  - Dyspnoea exertional [Unknown]
  - Abnormal loss of weight [Unknown]
  - Hypernatraemia [Recovered/Resolved]
  - Nephrogenic diabetes insipidus [Recovering/Resolving]
  - Nocturia [Unknown]
  - Vomiting [Unknown]
  - Fatigue [Unknown]
  - Nausea [Unknown]
